FAERS Safety Report 4570196-X (Version None)
Quarter: 2005Q1

REPORT INFORMATION
  Report Type: 
  Country: None (occurrence: None)
  Receive Date: 20050202
  Receipt Date: 20050129
  Transmission Date: 20050727
  Serious: Yes (Hospitalization, Other)
  Sender: FDA-Public Use
  Company Number: EWC040639587

PATIENT
  Age: 57 Year
  Sex: Female
  Weight: 93 kg

DRUGS (12)
  1. HUMALOG [Suspect]
     Indication: DIABETES MELLITUS
     Dosage: 32 IU/3
     Dates: start: 20030707
  2. HUMULIN N [Suspect]
     Indication: DIABETES MELLITUS
     Dosage: 22 IU/L
     Dates: start: 20040306
  3. SIMOVIL    (SIMVASTATIN) [Concomitant]
  4. RAMIPRIL [Concomitant]
  5. ASPIRIN [Concomitant]
  6. LOPRESSOR [Concomitant]
  7. NEOBLOC                  (METOPROLOL TARTRATE) [Concomitant]
  8. XENICAL [Concomitant]
  9. FUROSEMIDE [Concomitant]
  10. THIAMINE HCL [Concomitant]
  11. CIPRALEX              (ESCITALOPRAM OXALATE) [Concomitant]
  12. ALDACTONE [Concomitant]

REACTIONS (11)
  - CULTURE WOUND POSITIVE [None]
  - DIABETIC FOOT [None]
  - FEELING ABNORMAL [None]
  - HYPOGLYCAEMIA [None]
  - IMPAIRED HEALING [None]
  - LIMB INJURY [None]
  - LOSS OF CONSCIOUSNESS [None]
  - OEDEMA PERIPHERAL [None]
  - OPEN WOUND [None]
  - STREPTOCOCCAL INFECTION [None]
  - THERAPY NON-RESPONDER [None]
